FAERS Safety Report 9813590 (Version 5)
Quarter: 2014Q2

REPORT INFORMATION
  Report Type: Spontaneous
  Country: US (occurrence: US)
  Receive Date: 20140113
  Receipt Date: 20140402
  Transmission Date: 20141212
  Serious: Yes (Hospitalization, Other)
  Sender: FDA-Public Use
  Company Number: US-ACORDA-ACO_101161_2014

PATIENT
  Age: 45 Year
  Sex: Female
  Weight: 64.85 kg

DRUGS (7)
  1. AMPYRA [Suspect]
     Indication: GAIT DISTURBANCE
     Dosage: 10 MG, BID
     Route: 048
     Dates: start: 20100604, end: 20131123
  2. WELLBUTRIN [Suspect]
     Indication: DEPRESSION
     Dosage: 150 MG QAM, 100 MG QPM
     Route: 048
     Dates: end: 20140107
  3. GILENYA [Suspect]
     Indication: PRODUCT USED FOR UNKNOWN INDICATION
     Dosage: 0.5 MG, QD
     Route: 065
  4. SYNTHROID [Concomitant]
     Indication: THYROID DISORDER
     Dosage: 150 ?G, QD
     Route: 065
  5. DOXYCYCLINE [Concomitant]
     Indication: PRODUCT USED FOR UNKNOWN INDICATION
     Dosage: 50 MG, BID
     Route: 065
  6. MULTIVITAMIN [Concomitant]
     Indication: PRODUCT USED FOR UNKNOWN INDICATION
     Dosage: UNK, QD
     Route: 065
  7. MINOCYCLINE [Concomitant]
     Indication: ACNE
     Dosage: 100 MG, BID
     Route: 065

REACTIONS (3)
  - Convulsion [Recovered/Resolved]
  - Accidental overdose [Recovered/Resolved]
  - Back pain [Unknown]
